FAERS Safety Report 20958598 (Version 1)
Quarter: 2022Q2

REPORT INFORMATION
  Report Type: Spontaneous
  Country: MY (occurrence: MY)
  Receive Date: 20220614
  Receipt Date: 20220614
  Transmission Date: 20220721
  Serious: Yes (Other)
  Sender: FDA-Public Use
  Company Number: MY-FreseniusKabi-FK202208004

PATIENT
  Age: 11 Month
  Sex: Female
  Weight: 7.5 kg

DRUGS (4)
  1. FENTANYL [Suspect]
     Active Substance: FENTANYL
     Indication: Marsupialisation
     Dosage: 5-10 ?G/KG/H
     Route: 042
  2. MIDAZOLAM [Suspect]
     Active Substance: MIDAZOLAM
     Indication: Marsupialisation
     Dosage: 1-4 ?G/KG/MIN
     Route: 042
  3. DEXAMETHASONE [Concomitant]
     Active Substance: DEXAMETHASONE
     Indication: Marsupialisation
     Route: 042
  4. AUGMENTIN [Concomitant]
     Active Substance: AMOXICILLIN\CLAVULANATE POTASSIUM
     Indication: Product used for unknown indication
     Route: 042

REACTIONS (3)
  - Febrile convulsion [Recovered/Resolved]
  - Nosocomial infection [Recovered/Resolved]
  - Drug withdrawal syndrome [Recovered/Resolved]
